FAERS Safety Report 14974920 (Version 3)
Quarter: 2018Q3

REPORT INFORMATION
  Report Type: Report from Study
  Country: GB (occurrence: GB)
  Receive Date: 20180605
  Receipt Date: 20180802
  Transmission Date: 20181010
  Serious: Yes (Hospitalization, Other)
  Sender: FDA-Public Use
  Company Number: GB-JNJFOC-20180525270

PATIENT
  Age: 67 Year
  Sex: Female
  Weight: 61 kg

DRUGS (11)
  1. ALENDRONIC ACID [Concomitant]
     Active Substance: ALENDRONIC ACID
     Route: 065
  2. STELARA [Suspect]
     Active Substance: USTEKINUMAB
     Indication: PSORIATIC ARTHROPATHY
     Dosage: 0.5 ML
     Route: 058
     Dates: start: 20170605
  3. NAPROXEN. [Concomitant]
     Active Substance: NAPROXEN
     Dosage: 1 TO 2 TWICE A DAY
     Route: 065
  4. CALCIUM [Concomitant]
     Active Substance: CALCIUM
     Route: 065
  5. ESOMEPRAZOLE [Concomitant]
     Active Substance: ESOMEPRAZOLE
     Route: 065
  6. METFORMIN [Concomitant]
     Active Substance: METFORMIN HYDROCHLORIDE
     Route: 065
  7. ATORVASTATIN [Concomitant]
     Active Substance: ATORVASTATIN
     Route: 065
  8. PARACETAMOL [Concomitant]
     Active Substance: ACETAMINOPHEN
     Dosage: 1 TO 2 WHEN REQUIRED FOUR TIMES A DAY
     Route: 065
  9. EVACAL D3 [Concomitant]
     Route: 065
  10. STELARA [Suspect]
     Active Substance: USTEKINUMAB
     Indication: PSORIASIS
     Dosage: 0.5 ML
     Route: 058
     Dates: start: 20170605
  11. PREDNISOLONE. [Concomitant]
     Active Substance: PREDNISOLONE
     Dosage: AS DIRECTED
     Route: 065

REACTIONS (6)
  - Lower respiratory tract infection [Unknown]
  - Abdominal adhesions [Recovered/Resolved]
  - Volvulus [Not Recovered/Not Resolved]
  - Psoriatic arthropathy [Unknown]
  - Small intestinal obstruction [Recovered/Resolved]
  - Erythema [Unknown]

NARRATIVE: CASE EVENT DATE: 20180424
